FAERS Safety Report 7452856-6 (Version None)
Quarter: 2011Q2

REPORT INFORMATION
  Report Type: 
  Country: None (occurrence: None)
  Receive Date: 20110502
  Receipt Date: 20101011
  Transmission Date: 20111010
  Serious: No
  Sender: FDA-Public Use
  Company Number: US-ASTRAZENECA-2010SE47927

PATIENT
  Age: 59 Year
  Sex: Female
  Weight: 179.6 kg

DRUGS (5)
  1. NEXIUM [Suspect]
     Indication: GASTROOESOPHAGEAL REFLUX DISEASE
     Route: 048
     Dates: start: 20020101
  2. LISINOPRIL [Concomitant]
     Indication: HYPERTENSION
  3. IBUPROFEN [Concomitant]
     Indication: ARTHRALGIA
  4. ALPRAZOLAM [Concomitant]
     Indication: ANXIETY
  5. VENLAFAXINE [Concomitant]
     Indication: DEPRESSION

REACTIONS (2)
  - COUGH [None]
  - DRUG DOSE OMISSION [None]
